FAERS Safety Report 25716378 (Version 2)
Quarter: 2025Q4

REPORT INFORMATION
  Report Type: Spontaneous
  Country: US (occurrence: US)
  Receive Date: 20250822
  Receipt Date: 20251003
  Transmission Date: 20260117
  Serious: No
  Sender: BRISTOL-MYERS SQUIBB COMPANY
  Company Number: US-BRISTOL-MYERS SQUIBB COMPANY-2025-117098

PATIENT
  Age: 63 Year
  Sex: Female

DRUGS (2)
  1. ORENCIA [Suspect]
     Active Substance: ABATACEPT
     Indication: Rheumatoid arthritis
     Dates: start: 202502
  2. ORENCIA [Suspect]
     Active Substance: ABATACEPT
     Dates: start: 202502

REACTIONS (2)
  - Therapy non-responder [Unknown]
  - Rheumatoid arthritis [Unknown]
